FAERS Safety Report 20001062 (Version 1)
Quarter: 2021Q4

REPORT INFORMATION
  Report Type: Spontaneous
  Country: US (occurrence: US)
  Receive Date: 20211026
  Receipt Date: 20211026
  Transmission Date: 20220303
  Serious: Yes (Hospitalization)
  Sender: FDA-Public Use
  Company Number: None

PATIENT
  Age: 14 Year
  Sex: Female

DRUGS (2)
  1. VOTRIENT [Suspect]
     Active Substance: PAZOPANIB HYDROCHLORIDE
  2. UDENYCA [Concomitant]
     Active Substance: PEGFILGRASTIM-CBQV

REACTIONS (3)
  - Vomiting [None]
  - Oesophagitis [None]
  - Alopecia [None]

NARRATIVE: CASE EVENT DATE: 20211022
